FAERS Safety Report 4586596-8 (Version None)
Quarter: 2005Q1

REPORT INFORMATION
  Report Type: 
  Country: None (occurrence: None)
  Receive Date: 20050218
  Receipt Date: 20040603
  Transmission Date: 20050727
  Serious: Yes (Other)
  Sender: FDA-Public Use
  Company Number: US-BRISTOL-MYERS SQUIBB COMPANY-12605044

PATIENT
  Age: 62 Year
  Sex: Male
  Weight: 86 kg

DRUGS (11)
  1. TAXOL [Suspect]
     Indication: LUNG NEOPLASM MALIGNANT
     Route: 042
     Dates: start: 20040518, end: 20040518
  2. SOTALOL HCL [Concomitant]
  3. ALOXI [Concomitant]
     Indication: PREMEDICATION
     Route: 042
  4. SOLU-MEDROL [Concomitant]
     Indication: PREMEDICATION
     Route: 042
  5. BENADRYL [Concomitant]
     Indication: PREMEDICATION
     Route: 042
  6. PEPCID [Concomitant]
     Indication: PREMEDICATION
     Route: 042
  7. EXTRA STRENGTH TYLENOL [Concomitant]
     Indication: PREMEDICATION
  8. LIPITOR [Concomitant]
  9. PREVACID [Concomitant]
  10. HYDROCHLOROTHIAZIDE [Concomitant]
  11. MULTIVITAMIN [Concomitant]

REACTIONS (1)
  - MYALGIA [None]
